FAERS Safety Report 7004982-3 (Version None)
Quarter: 2010Q3

REPORT INFORMATION
  Report Type: 
  Country: None (occurrence: None)
  Receive Date: 20100921
  Receipt Date: 20100913
  Transmission Date: 20110219
  Serious: Yes (Death, Hospitalization, Other)
  Sender: FDA-Public Use
  Company Number: US-AMGEN-QUU428178

PATIENT
  Sex: Female
  Weight: 120 kg

DRUGS (2)
  1. EPOGEN [Suspect]
     Indication: DIALYSIS
     Route: 042
     Dates: start: 20100721
  2. VENOFER [Suspect]
     Route: 042
     Dates: start: 20100721, end: 20100721

REACTIONS (9)
  - ANAPHYLACTIC REACTION [None]
  - CARDIAC ARREST [None]
  - CARDIOVASCULAR DISORDER [None]
  - HEART RATE INCREASED [None]
  - LOSS OF CONSCIOUSNESS [None]
  - MALAISE [None]
  - MYOCARDIAL INFARCTION [None]
  - RESPIRATORY ARREST [None]
  - RESPIRATORY DISTRESS [None]
